FAERS Safety Report 6722414-7 (Version None)
Quarter: 2010Q2

REPORT INFORMATION
  Report Type: 
  Country: None (occurrence: None)
  Receive Date: 20100512
  Receipt Date: 20100506
  Transmission Date: 20101027
  Serious: Yes (Other)
  Sender: FDA-Public Use
  Company Number: US-RB-008690-10

PATIENT
  Sex: Female

DRUGS (1)
  1. SUBOXONE [Suspect]
     Dosage: DAILY DOSE KNOWN, UNIT DOSE AND FREQUENCY UNKONWN
     Route: 060
     Dates: start: 20060101

REACTIONS (2)
  - ABORTION SPONTANEOUS [None]
  - DRUG EXPOSURE DURING PREGNANCY [None]
